FAERS Safety Report 9110840 (Version 3)
Quarter: 2014Q3

REPORT INFORMATION
  Report Type: Spontaneous
  Country: US (occurrence: US)
  Receive Date: 20130219
  Receipt Date: 20140902
  Transmission Date: 20150326
  Serious: Yes (Other)
  Sender: FDA-Public Use
  Company Number: US-BRISTOL-MYERS SQUIBB COMPANY-16326373

PATIENT
  Age: 63 Year
  Sex: Female
  Weight: 57 kg

DRUGS (2)
  1. ABATACEPT SUBQ INJECTION 125MG/ML [Suspect]
     Active Substance: ABATACEPT
     Indication: RHEUMATOID ARTHRITIS
     Dosage: BATCH NO. 3J77454, EXP DT: 30AUG2015?STOPPED:01JAN12?RESUMED:FEB13
     Route: 058
     Dates: start: 20111225
  2. ARAVA [Concomitant]
     Active Substance: LEFLUNOMIDE

REACTIONS (6)
  - Nausea [Recovered/Resolved]
  - Malaise [Unknown]
  - Cough [Unknown]
  - Bronchitis [Unknown]
  - Arthropathy [Unknown]
  - Vomiting [Recovered/Resolved]

NARRATIVE: CASE EVENT DATE: 201403
